FAERS Safety Report 18288468 (Version 1)
Quarter: 2020Q3

REPORT INFORMATION
  Report Type: Spontaneous
  Country: US (occurrence: US)
  Receive Date: 20200919
  Receipt Date: 20200919
  Transmission Date: 20201103
  Serious: Yes (Hospitalization, Disabling)
  Sender: FDA-Public Use
  Company Number: None

PATIENT
  Age: 10 Year
  Sex: Female

DRUGS (1)
  1. CLINDAMYCIN 75 MG/5ML SOLR COMMONLY KNOWN AS: CLEOCIN [Suspect]
     Active Substance: CLINDAMYCIN
     Dosage: ?          QUANTITY:25 ML;?
     Route: 048
     Dates: start: 20200530, end: 20200602

REACTIONS (6)
  - Eating disorder [None]
  - Abdominal pain upper [None]
  - Loss of personal independence in daily activities [None]
  - Myalgia [None]
  - Faecaloma [None]
  - Abdominal pain [None]

NARRATIVE: CASE EVENT DATE: 20200601
